FAERS Safety Report 9148236 (Version 1)
Quarter: 2013Q1

REPORT INFORMATION
  Report Type: Spontaneous
  Country: US (occurrence: US)
  Receive Date: 20130308
  Receipt Date: 20130308
  Transmission Date: 20140127
  Serious: No
  Sender: FDA-Public Use
  Company Number: US-BIOGENIDEC-2013BI020749

PATIENT
  Sex: Female

DRUGS (4)
  1. AVONEX [Suspect]
     Indication: MULTIPLE SCLEROSIS
     Route: 030
  2. AVONEX [Suspect]
     Indication: MULTIPLE SCLEROSIS
     Route: 030
     Dates: start: 20001101
  3. WELLBUTRIN [Concomitant]
  4. MAXALT [Concomitant]

REACTIONS (5)
  - Scleritis [Not Recovered/Not Resolved]
  - Vision blurred [Unknown]
  - Eye swelling [Unknown]
  - Migraine [Unknown]
  - Fatigue [Unknown]
